FAERS Safety Report 8255230-8 (Version None)
Quarter: 2012Q1

REPORT INFORMATION
  Report Type: 
  Country: None (occurrence: None)
  Receive Date: 20120322
  Receipt Date: 20111222
  Transmission Date: 20120608
  Serious: Yes (Hospitalization)
  Sender: FDA-Public Use
  Company Number: UTC-013893

PATIENT
  Age: 49 Year
  Sex: Female

DRUGS (1)
  1. TYVASO [Suspect]
     Indication: PULMONARY ARTERIAL HYPERTENSION
     Dosage: 96 MCG (14 MCG, 4 IN 1 D), INHALATION
     Route: 055

REACTIONS (4)
  - DIZZINESS [None]
  - HYPOTENSION [None]
  - SYNCOPE [None]
  - ASTHENIA [None]
